FAERS Safety Report 11506122 (Version 1)
Quarter: 2015Q3

REPORT INFORMATION
  Report Type: Spontaneous
  Country: US (occurrence: US)
  Receive Date: 20150915
  Receipt Date: 20150915
  Transmission Date: 20151125
  Serious: No
  Sender: FDA-Public Use
  Company Number: US-ROCHE-792287

PATIENT
  Sex: Female

DRUGS (3)
  1. RIBAVIRIN. [Suspect]
     Active Substance: RIBAVIRIN
     Indication: CHRONIC HEPATITIS C
     Route: 065
  2. TELAPREVIR [Concomitant]
     Active Substance: TELAPREVIR
     Dosage: DRUG NAME REPORTED AS INCIVEK
     Route: 065
  3. PEGASYS [Suspect]
     Active Substance: PEGINTERFERON ALFA-2A
     Indication: CHRONIC HEPATITIS C
     Route: 065

REACTIONS (6)
  - Faeces pale [Unknown]
  - Irritability [Unknown]
  - Nervousness [Unknown]
  - Platelet count decreased [Unknown]
  - Diarrhoea [Unknown]
  - Abdominal discomfort [Unknown]
